FAERS Safety Report 6583413-1 (Version None)
Quarter: 2010Q1

REPORT INFORMATION
  Report Type: 
  Country: None (occurrence: None)
  Receive Date: 20100216
  Receipt Date: 20100209
  Transmission Date: 20100710
  Serious: Yes (Hospitalization)
  Sender: FDA-Public Use
  Company Number: US-SANOFI-AVENTIS-2010SA008144

PATIENT
  Age: 48 Year
  Sex: Female

DRUGS (2)
  1. APIDRA [Suspect]
     Indication: DIABETES MELLITUS
     Dosage: WITH MEALS DOSE:10 UNIT(S)
     Route: 058
  2. OPTICLICK [Suspect]
     Indication: DIABETES MELLITUS
     Dates: start: 20070101

REACTIONS (3)
  - BLOOD GLUCOSE INCREASED [None]
  - CARDIAC DISORDER [None]
  - HYPERTENSION [None]
